FAERS Safety Report 17830527 (Version 2)
Quarter: 2020Q3

REPORT INFORMATION
  Report Type: Spontaneous
  Country: US (occurrence: US)
  Receive Date: 20200527
  Receipt Date: 20200702
  Transmission Date: 20201102
  Serious: No
  Sender: FDA-Public Use
  Company Number: US-JNJFOC-20200531743

PATIENT
  Sex: Male
  Weight: 81.72 kg

DRUGS (1)
  1. CONCERTA [Suspect]
     Active Substance: METHYLPHENIDATE HYDROCHLORIDE
     Indication: PRODUCT USED FOR UNKNOWN INDICATION
     Dosage: FOR 8 TO 10 MONTHS
     Route: 048

REACTIONS (2)
  - Spontaneous ejaculation [Unknown]
  - Drug ineffective [Unknown]
